FAERS Safety Report 8167767-0 (Version None)
Quarter: 2012Q1

REPORT INFORMATION
  Report Type: 
  Country: None (occurrence: None)
  Receive Date: 20120227
  Receipt Date: 20120217
  Transmission Date: 20120608
  Serious: Yes (Death)
  Sender: FDA-Public Use
  Company Number: JP-ROCHE-794487

PATIENT
  Age: 63 Year
  Sex: Male
  Weight: 52 kg

DRUGS (44)
  1. VITAMIN A [Concomitant]
     Dosage: DRUG : SAHNE (VITAMIN A OIL) CREAM.  PROPER QUANTITY
     Route: 003
  2. EMEND [Concomitant]
     Route: 048
     Dates: start: 20110610, end: 20110611
  3. EMEND [Concomitant]
     Route: 048
     Dates: start: 20110701, end: 20110702
  4. DECADRON [Concomitant]
     Route: 048
     Dates: start: 20110520, end: 20110521
  5. AVASTIN [Suspect]
     Route: 041
     Dates: start: 20110610, end: 20110610
  6. OXALIPLATIN [Suspect]
     Indication: COLON CANCER METASTATIC
     Dosage: DOSE : 130 MG/M2
     Route: 041
     Dates: start: 20110427, end: 20110427
  7. EMEND [Concomitant]
     Route: 048
     Dates: start: 20110428, end: 20110428
  8. KYTRIL [Concomitant]
     Route: 048
     Dates: start: 20110428, end: 20110428
  9. DECADRON [Concomitant]
     Route: 041
     Dates: start: 20110722, end: 20110722
  10. OXALIPLATIN [Suspect]
     Route: 041
     Dates: start: 20110520, end: 20110520
  11. OXALIPLATIN [Suspect]
     Route: 041
     Dates: start: 20110610, end: 20110610
  12. FAMOTIDINE [Concomitant]
     Route: 048
     Dates: start: 20110610, end: 20110701
  13. EMEND [Concomitant]
     Route: 048
     Dates: start: 20110520, end: 20110520
  14. EMEND [Concomitant]
     Route: 048
     Dates: start: 20110701, end: 20110701
  15. MOTILIUM [Concomitant]
     Route: 048
     Dates: start: 20110428, end: 20110504
  16. WHITE PETROLEUM [Concomitant]
     Dosage: PROPER QUANTITY
     Route: 003
  17. DECADRON [Concomitant]
     Route: 048
     Dates: start: 20110610, end: 20110611
  18. KYTRIL [Concomitant]
     Route: 041
     Dates: start: 20110722, end: 20110722
  19. XELODA [Suspect]
     Route: 048
     Dates: start: 20110520, end: 20110603
  20. XELODA [Suspect]
     Dosage: DRUG STOPPED IN : JULY 2011
     Route: 048
  21. EMEND [Concomitant]
     Route: 048
     Dates: start: 20110722, end: 20110722
  22. DECADRON [Concomitant]
     Route: 048
     Dates: start: 20110701, end: 20110702
  23. XELODA [Suspect]
     Indication: COLON CANCER METASTATIC
     Dosage: DRUG REPORTED AS : XELODA 300
     Route: 048
     Dates: start: 20110427, end: 20110511
  24. AMOBAN [Concomitant]
     Dosage: WHEN IT IS NOT POSSIBLE TO SLEEP
     Route: 048
  25. HIRUDOID [Concomitant]
     Dosage: CREAM.  PROPER QUANTITY
     Route: 003
     Dates: start: 20110427, end: 20110701
  26. FENTANYL-100 [Concomitant]
     Dosage: FORM : TAPE
     Route: 062
     Dates: start: 20110428, end: 20110503
  27. FENTANYL-100 [Concomitant]
     Route: 062
     Dates: start: 20110506, end: 20110701
  28. XELODA [Suspect]
     Route: 048
     Dates: start: 20110701, end: 20110715
  29. AVASTIN [Suspect]
     Indication: COLON CANCER METASTATIC
     Route: 041
     Dates: start: 20110427, end: 20110427
  30. OXALIPLATIN [Suspect]
     Route: 041
     Dates: start: 20110722, end: 20110722
  31. FAMOTIDINE [Concomitant]
     Route: 048
     Dates: start: 20110427, end: 20110609
  32. EMEND [Concomitant]
     Route: 048
     Dates: start: 20110722, end: 20110723
  33. DECADRON [Concomitant]
     Route: 048
     Dates: start: 20110428, end: 20110429
  34. DECADRON [Concomitant]
     Route: 048
     Dates: start: 20110722, end: 20110723
  35. FENTANYL-100 [Concomitant]
     Route: 062
     Dates: start: 20110501, end: 20110506
  36. CANDESARTAN CILEXETIL [Concomitant]
     Route: 048
     Dates: start: 20110520, end: 20110701
  37. CHLOR-TRIMETON [Concomitant]
     Route: 041
     Dates: start: 20110722, end: 20110722
  38. XELODA [Suspect]
     Route: 048
     Dates: start: 20110610, end: 20110624
  39. OXALIPLATIN [Suspect]
     Route: 041
     Dates: start: 20110701, end: 20110701
  40. MAGNESIUM OXIDE [Concomitant]
     Route: 048
  41. EMEND [Concomitant]
     Route: 048
     Dates: start: 20110427, end: 20110427
  42. EMEND [Concomitant]
     Route: 048
     Dates: start: 20110520, end: 20110521
  43. EMEND [Concomitant]
     Route: 048
     Dates: start: 20110610, end: 20110610
  44. PRAVASTATIN SODIUM [Concomitant]
     Route: 048
     Dates: start: 20110701, end: 20110701

REACTIONS (4)
  - DEATH [None]
  - PALMAR-PLANTAR ERYTHRODYSAESTHESIA SYNDROME [None]
  - DISEASE PROGRESSION [None]
  - HYPERTENSION [None]
